FAERS Safety Report 21255630 (Version 1)
Quarter: 2022Q3

REPORT INFORMATION
  Report Type: Spontaneous
  Country: US (occurrence: US)
  Receive Date: 20220825
  Receipt Date: 20220825
  Transmission Date: 20221027
  Serious: Yes (Life-Threatening)
  Sender: FDA-Public Use
  Company Number: US-PURDUE PHARMA-USA-2022-0296106

PATIENT
  Age: 59 Year
  Sex: Female

DRUGS (1)
  1. LIDOCAINE [Suspect]
     Active Substance: LIDOCAINE
     Indication: Product used for unknown indication
     Dosage: UNK

REACTIONS (1)
  - Local anaesthetic systemic toxicity [Unknown]
